FAERS Safety Report 19114374 (Version 3)
Quarter: 2021Q2

REPORT INFORMATION
  Report Type: Report from Study
  Country: None (occurrence: US)
  Receive Date: 20210408
  Receipt Date: 20210421
  Transmission Date: 20210717
  Serious: Yes (Hospitalization, Other)
  Sender: FDA-Public Use
  Company Number: US-ABBVIE-21K-163-3766945-00

PATIENT
  Age: 26 Year
  Sex: Female
  Weight: 104.42 kg

DRUGS (7)
  1. COVID?19 VACCINE NOS. [Concomitant]
     Active Substance: COVID-19 VACCINE NOS
     Indication: COVID-19 IMMUNISATION
     Dosage: PFIZER
     Route: 030
     Dates: start: 20210124, end: 20210124
  2. SYNTHROID [Concomitant]
     Active Substance: LEVOTHYROXINE SODIUM
     Indication: BASEDOW^S DISEASE
  3. COVID?19 VACCINE NOS. [Concomitant]
     Active Substance: COVID-19 VACCINE NOS
     Dosage: PFIZER
     Route: 030
     Dates: start: 20210216, end: 20210216
  4. MELATONIN [Concomitant]
     Active Substance: MELATONIN
     Indication: SLEEP DISORDER THERAPY
  5. ORILISSA [Suspect]
     Active Substance: ELAGOLIX SODIUM
     Indication: ENDOMETRIOSIS
     Route: 048
     Dates: start: 202101, end: 202103
  6. ORILISSA [Suspect]
     Active Substance: ELAGOLIX SODIUM
     Route: 048
     Dates: start: 20210321, end: 20210326
  7. ZYRTEC [Concomitant]
     Active Substance: CETIRIZINE HYDROCHLORIDE
     Indication: HYPERSENSITIVITY

REACTIONS (28)
  - Epiploic appendagitis [Recovered/Resolved]
  - Amenorrhoea [Not Recovered/Not Resolved]
  - Blood cholesterol increased [Not Recovered/Not Resolved]
  - Blood triglycerides increased [Not Recovered/Not Resolved]
  - Hypomenorrhoea [Recovered/Resolved]
  - Discomfort [Not Recovered/Not Resolved]
  - Insomnia [Recovered/Resolved]
  - General physical condition abnormal [Recovering/Resolving]
  - Low density lipoprotein increased [Not Recovered/Not Resolved]
  - Suicidal ideation [Recovered/Resolved]
  - Suicide attempt [Recovering/Resolving]
  - Pain [Not Recovered/Not Resolved]
  - Discomfort [Unknown]
  - Musculoskeletal discomfort [Not Recovered/Not Resolved]
  - Hot flush [Recovering/Resolving]
  - Headache [Recovering/Resolving]
  - Endometriosis [Not Recovered/Not Resolved]
  - Drug ineffective [Not Recovered/Not Resolved]
  - Haemorrhagic cyst [Not Recovered/Not Resolved]
  - Thyroxine free increased [Not Recovered/Not Resolved]
  - Insomnia [Recovering/Resolving]
  - Nausea [Recovering/Resolving]
  - Anxiety [Unknown]
  - Menstrual disorder [Unknown]
  - Menstruation delayed [Recovered/Resolved]
  - Vaginal haemorrhage [Unknown]
  - Blood thyroid stimulating hormone increased [Not Recovered/Not Resolved]
  - High density lipoprotein increased [Not Recovered/Not Resolved]

NARRATIVE: CASE EVENT DATE: 2021
